FAERS Safety Report 5509746-5 (Version None)
Quarter: 2007Q4

REPORT INFORMATION
  Report Type: 
  Country: None (occurrence: None)
  Receive Date: 20071107
  Receipt Date: 20071107
  Transmission Date: 20080405
  Serious: Yes (Other)
  Sender: FDA-Public Use
  Company Number: None

PATIENT
  Age: 20 Year
  Sex: Male
  Weight: 68.0396 kg

DRUGS (3)
  1. PROTONIX [Suspect]
     Indication: HOSPITALISATION
     Dosage: 1 TABLET DAILY PO
     Route: 048
     Dates: start: 20071031, end: 20071105
  2. PROTONIX [Suspect]
     Indication: PROPHYLAXIS OF NAUSEA AND VOMITING
     Dosage: 1 TABLET DAILY PO
     Route: 048
     Dates: start: 20071031, end: 20071105
  3. PROTONIX [Suspect]
     Indication: SPLENIC RUPTURE
     Dosage: 1 TABLET DAILY PO
     Route: 048
     Dates: start: 20071031, end: 20071105

REACTIONS (2)
  - BLISTER [None]
  - SKIN EXFOLIATION [None]
